FAERS Safety Report 4380884-6 (Version None)
Quarter: 2004Q2

REPORT INFORMATION
  Report Type: 
  Country: None (occurrence: None)
  Receive Date: 20040616
  Receipt Date: 20040614
  Transmission Date: 20050107
  Serious: Yes (Life-Threatening, Hospitalization)
  Sender: FDA-Public Use
  Company Number: 2004PK01014

PATIENT
  Age: 85 Year
  Sex: Female
  Weight: 62 kg

DRUGS (5)
  1. ACERBON ^ZENECA^ [Suspect]
     Indication: HYPERTENSION
     Dosage: 5 MG DAILY PO
     Route: 048
     Dates: start: 20010101
  2. AMARYL [Suspect]
     Indication: DIABETES MELLITUS
     Dosage: 2 MG DAILY PO
     Route: 048
     Dates: start: 20020101, end: 20040316
  3. L-THYROXIN [Concomitant]
  4. REMERGIL [Concomitant]
  5. VIOXX [Concomitant]

REACTIONS (2)
  - DRUG INTERACTION [None]
  - SHOCK HYPOGLYCAEMIC [None]
